FAERS Safety Report 23533160 (Version 1)
Quarter: 2024Q1

REPORT INFORMATION
  Report Type: Spontaneous
  Country: US (occurrence: US)
  Receive Date: 20240216
  Receipt Date: 20240216
  Transmission Date: 20240409
  Serious: Yes (Hospitalization, Other)
  Sender: FDA-Public Use
  Company Number: US-JNJFOC-20240213838

PATIENT
  Age: 61 Year
  Sex: Male
  Weight: 104.42 kg

DRUGS (1)
  1. CARVYKTI [Suspect]
     Active Substance: CILTACABTAGENE AUTOLEUCEL
     Indication: Plasma cell myeloma
     Dosage: 70 ML 0.7 X 10 ^ 6 CAR + VT CELLS
     Route: 065
     Dates: start: 20230615

REACTIONS (5)
  - Urinary retention [Recovering/Resolving]
  - Acute respiratory failure [Recovering/Resolving]
  - Encephalopathy [Recovering/Resolving]
  - Parkinsonism [Not Recovered/Not Resolved]
  - Asthenia [Not Recovered/Not Resolved]

NARRATIVE: CASE EVENT DATE: 20230817
